FAERS Safety Report 20037379 (Version 2)
Quarter: 2021Q4

REPORT INFORMATION
  Report Type: Spontaneous
  Country: UA (occurrence: None)
  Receive Date: 20211105
  Receipt Date: 20211121
  Transmission Date: 20220304
  Serious: Yes (Other)
  Sender: FDA-Public Use
  Company Number: UA-ROCHE-2947077

PATIENT
  Age: 55 Year
  Sex: Male

DRUGS (1)
  1. TECENTRIQ [Suspect]
     Active Substance: ATEZOLIZUMAB
     Indication: Lung neoplasm malignant
     Route: 042

REACTIONS (4)
  - Metastasis [Unknown]
  - Metastases to liver [Unknown]
  - Metastases to kidney [Unknown]
  - Condition aggravated [Unknown]
